FAERS Safety Report 20202375 (Version 1)
Quarter: 2021Q4

REPORT INFORMATION
  Report Type: Spontaneous
  Country: MY (occurrence: MY)
  Receive Date: 20211217
  Receipt Date: 20211217
  Transmission Date: 20220304
  Serious: Yes (Other)
  Sender: FDA-Public Use
  Company Number: MY-009507513-2112MYS005609

PATIENT
  Age: 33 Year
  Sex: Female

DRUGS (1)
  1. BRIDION [Suspect]
     Active Substance: SUGAMMADEX
     Indication: Neuromuscular blockade reversal
     Dosage: 200 MILLIGRAM, QD
     Route: 042

REACTIONS (3)
  - Bronchospasm [Recovering/Resolving]
  - Rhonchi [Recovering/Resolving]
  - Chills [Recovering/Resolving]
